FAERS Safety Report 16832169 (Version 1)
Quarter: 2019Q3

REPORT INFORMATION
  Report Type: Spontaneous
  Country: JP (occurrence: JP)
  Receive Date: 20190920
  Receipt Date: 20190920
  Transmission Date: 20191005
  Serious: Yes (Hospitalization, Other)
  Sender: FDA-Public Use
  Company Number: JP-ACTELION-A-CH2019-195676

PATIENT
  Age: 41 Year
  Sex: Female

DRUGS (1)
  1. EPOPROSTENOL SODIUM. [Suspect]
     Active Substance: EPOPROSTENOL SODIUM
     Indication: PULMONARY ARTERIAL HYPERTENSION
     Route: 042

REACTIONS (5)
  - Device breakage [Unknown]
  - Ventricular hypokinesia [Recovered/Resolved]
  - Electrocardiogram U wave inversion [Recovered/Resolved]
  - Ventricular hypertrophy [Recovered/Resolved]
  - Stress cardiomyopathy [Recovered/Resolved]
